FAERS Safety Report 25737285 (Version 1)
Quarter: 2025Q3

REPORT INFORMATION
  Report Type: Spontaneous
  Country: US (occurrence: US)
  Receive Date: 20250828
  Receipt Date: 20250828
  Transmission Date: 20251021
  Serious: Yes (Hospitalization)
  Sender: AMARIN
  Company Number: US-Amarin Pharma  Inc-2025AMR000567

PATIENT
  Age: 47 Year
  Sex: Female

DRUGS (6)
  1. ICOSAPENT ETHYL [Suspect]
     Active Substance: ICOSAPENT ETHYL
     Indication: Blood triglycerides increased
     Route: 065
  2. ICOSAPENT ETHYL [Suspect]
     Active Substance: ICOSAPENT ETHYL
     Route: 065
  3. FENOFIBRATE [Suspect]
     Active Substance: FENOFIBRATE
     Indication: Blood triglycerides increased
     Dosage: DAILY
     Route: 065
  4. FENOFIBRATE [Suspect]
     Active Substance: FENOFIBRATE
     Dosage: DAILY
     Route: 065
  5. ROSUVASTATIN [Suspect]
     Active Substance: ROSUVASTATIN
     Indication: Blood triglycerides increased
     Dosage: DAILY
     Route: 065
  6. ROSUVASTATIN [Suspect]
     Active Substance: ROSUVASTATIN
     Dosage: DAILY
     Route: 065

REACTIONS (4)
  - Pancreatitis relapsing [Recovered/Resolved]
  - Blood triglycerides increased [Recovered/Resolved]
  - Lipoprotein metabolism disorder [Unknown]
  - Drug ineffective [Unknown]
